FAERS Safety Report 10048451 (Version 1)
Quarter: 2014Q1

REPORT INFORMATION
  Report Type: Spontaneous
  Country: FR (occurrence: FR)
  Receive Date: 20140331
  Receipt Date: 20140331
  Transmission Date: 20141002
  Serious: Yes (Hospitalization)
  Sender: FDA-Public Use
  Company Number: FR-PFIZER INC-2014084168

PATIENT
  Age: 67 Year
  Sex: Female

DRUGS (12)
  1. TRIFLUCAN [Suspect]
     Dosage: 300 MG, DAILY
     Route: 048
     Dates: start: 20131113, end: 20140121
  2. PADERYL [Suspect]
     Dosage: 19.5 MG, 3X/DAY
     Dates: start: 20131113, end: 20140116
  3. QUESTRAN [Suspect]
     Dosage: 4 G, 3X/DAY
     Route: 048
     Dates: start: 20131113, end: 20140116
  4. AUGMENTIN [Suspect]
     Dosage: 1 G, 3X/DAY
     Dates: start: 20131113, end: 20140116
  5. INNOHEP [Suspect]
     Dosage: UNK
     Dates: start: 20131113, end: 20140116
  6. ARIMIDEX [Concomitant]
  7. ATACAND [Concomitant]
     Dosage: UNK
  8. LOXEN [Concomitant]
     Dosage: UNK
  9. METFORMIN [Concomitant]
     Dosage: UNK
  10. LEVOTHYROX [Concomitant]
     Dosage: UNK
  11. VITAMINE B1 B6 [Concomitant]
     Dosage: UNK
     Dates: start: 20131113
  12. IMODIUM ^JANSSEN^ [Concomitant]
     Dosage: UNK
     Dates: start: 20131113

REACTIONS (5)
  - Pancytopenia [Not Recovered/Not Resolved]
  - Rash [Recovered/Resolved]
  - Histiocytosis haematophagic [Recovering/Resolving]
  - Renal failure [Recovered/Resolved]
  - Drug reaction with eosinophilia and systemic symptoms [Recovered/Resolved]
